FAERS Safety Report 8722080 (Version 2)
Quarter: 2012Q4

REPORT INFORMATION
  Report Type: 
  Country: IL (occurrence: IL)
  Receive Date: 20120814
  Receipt Date: 20120829
  Transmission Date: 20130627
  Serious: Yes (Other)
  Sender: FDA-Public Use
  Company Number: IL-ASTELLAS-2012US006844

PATIENT
  Age: 91 Year
  Sex: Female

DRUGS (2)
  1. TARCEVA [Suspect]
     Indication: LUNG NEOPLASM MALIGNANT
     Dosage: UNK
     Route: 048
  2. TARCEVA [Suspect]
     Dosage: UNK
     Route: 048

REACTIONS (4)
  - Glaucoma [Unknown]
  - Optic atrophy [Recovered/Resolved]
  - Ectropion [Recovered/Resolved]
  - Abdominal pain [Unknown]
